FAERS Safety Report 6843002-8 (Version None)
Quarter: 2010Q3

REPORT INFORMATION
  Report Type: 
  Country: None (occurrence: None)
  Receive Date: 20100709
  Receipt Date: 20100624
  Transmission Date: 20110219
  Serious: Yes (Death)
  Sender: FDA-Public Use
  Company Number: 2010001848

PATIENT
  Age: 43 Year
  Sex: Male
  Weight: 63 kg

DRUGS (10)
  1. ERLOTINIB HYDROCHLORIDE [Suspect]
     Indication: NON-SMALL CELL LUNG CANCER
     Dosage: (150 MG, QD), ORAL
     Route: 048
     Dates: start: 20081231, end: 20081231
  2. MORPHINE [Concomitant]
  3. CEFAMANDOLE (CEFAMANDOLE) [Concomitant]
  4. ETAMSYLATE [Concomitant]
  5. TRANEXAMIC ACID (TRANEXAMIC ACID) [Concomitant]
  6. CLINDAMYCIN HYDROCHLORIDE [Concomitant]
  7. HYOSCINE HBR HYT [Concomitant]
  8. CIPROFLOXACIN HYDROCHLORIDE [Concomitant]
  9. LACTULOSE [Concomitant]
  10. DEXAMETHASONE [Concomitant]

REACTIONS (3)
  - MALIGNANT NEOPLASM PROGRESSION [None]
  - NON-SMALL CELL LUNG CANCER [None]
  - SUDDEN DEATH [None]
